FAERS Safety Report 5711245-2 (Version None)
Quarter: 2008Q2

REPORT INFORMATION
  Report Type: 
  Country: None (occurrence: None)
  Receive Date: 20080421
  Receipt Date: 20080421
  Transmission Date: 20081010
  Serious: Yes (Death)
  Sender: FDA-Public Use
  Company Number: None

PATIENT
  Sex: Male
  Weight: 81.6475 kg

DRUGS (1)
  1. HEPARIN [Suspect]
     Indication: CEREBROVASCULAR ACCIDENT
     Dates: start: 20080217, end: 20080219

REACTIONS (10)
  - BLOOD PRESSURE ABNORMAL [None]
  - CEREBRAL HAEMORRHAGE [None]
  - DRUG INEFFECTIVE [None]
  - FOREIGN BODY ASPIRATION [None]
  - POOR QUALITY DRUG ADMINISTERED [None]
  - PULSE ABNORMAL [None]
  - RESPIRATORY DISTRESS [None]
  - RETCHING [None]
  - THERAPEUTIC PRODUCT CONTAMINATION [None]
  - VOMITING [None]
